APPROVED DRUG PRODUCT: LITHIUM CARBONATE
Active Ingredient: LITHIUM CARBONATE
Strength: 300MG
Dosage Form/Route: CAPSULE;ORAL
Application: A072542 | Product #001
Applicant: USL PHARMA INC
Approved: Feb 1, 1989 | RLD: No | RS: No | Type: DISCN